FAERS Safety Report 5663986-3 (Version None)
Quarter: 2008Q1

REPORT INFORMATION
  Report Type: 
  Country: None (occurrence: None)
  Receive Date: 20080314
  Receipt Date: 20080306
  Transmission Date: 20080703
  Serious: Yes (Other)
  Sender: FDA-Public Use
  Company Number: HQWYE187711AUG04

PATIENT
  Sex: Female
  Weight: 109.41 kg

DRUGS (2)
  1. PREMARIN [Suspect]
     Indication: OSTEOPOROSIS
  2. PROVERA [Suspect]

REACTIONS (1)
  - BREAST CANCER METASTATIC [None]
